FAERS Safety Report 8549613-6 (Version None)
Quarter: 2012Q3

REPORT INFORMATION
  Report Type: 
  Country: None (occurrence: None)
  Receive Date: 20120730
  Receipt Date: 20120725
  Transmission Date: 20120928
  Serious: Yes (Life-Threatening, Other)
  Sender: FDA-Public Use
  Company Number: SE-ASTRAZENECA-2012SE48293

PATIENT
  Age: 17 Year
  Sex: Female

DRUGS (2)
  1. SEROQUEL [Suspect]
     Indication: DEPRESSION
     Route: 048
  2. SEROQUEL [Suspect]
     Route: 048
     Dates: start: 20120405, end: 20120614

REACTIONS (6)
  - VISION BLURRED [None]
  - HEADACHE [None]
  - NAUSEA [None]
  - INTRACRANIAL PRESSURE INCREASED [None]
  - PAPILLOEDEMA [None]
  - DIPLOPIA [None]
